FAERS Safety Report 24917090 (Version 1)
Quarter: 2025Q1

REPORT INFORMATION
  Report Type: Report from Study
  Country: IN (occurrence: IN)
  Receive Date: 20250203
  Receipt Date: 20250203
  Transmission Date: 20250408
  Serious: Yes (Hospitalization, Other)
  Sender: DAIICHI
  Company Number: IN-AstraZeneca-CH-00792641A

PATIENT
  Age: 41 Year
  Sex: Female
  Weight: 49 kg

DRUGS (1)
  1. ENHERTU [Suspect]
     Active Substance: FAM-TRASTUZUMAB DERUXTECAN-NXKI
     Indication: HER2 mutant non-small cell lung cancer
     Dosage: 200 MG, ONCE EVERY 3 WK
     Route: 048

REACTIONS (1)
  - Encephalopathy [Unknown]
